FAERS Safety Report 23012631 (Version 2)
Quarter: 2024Q1

REPORT INFORMATION
  Report Type: Report from Study
  Country: US (occurrence: US)
  Receive Date: 20230930
  Receipt Date: 20240327
  Transmission Date: 20240410
  Serious: No
  Sender: FDA-Public Use
  Company Number: US-SA-SAC20230925000124

PATIENT
  Age: 26 Year
  Sex: Female

DRUGS (1)
  1. DUPILUMAB [Suspect]
     Active Substance: DUPILUMAB
     Indication: Dermatitis atopic
     Dosage: 300 MG, QOW
     Route: 058
     Dates: start: 20181015

REACTIONS (6)
  - Fear of injection [Unknown]
  - Dermatitis atopic [Unknown]
  - Exfoliative rash [Unknown]
  - Dry skin [Unknown]
  - Erythema [Unknown]
  - Discomfort [Unknown]
